FAERS Safety Report 11151488 (Version 1)
Quarter: 2015Q2

REPORT INFORMATION
  Report Type: Spontaneous
  Country: CN (occurrence: CN)
  Receive Date: 20150601
  Receipt Date: 20150601
  Transmission Date: 20150821
  Serious: Yes (Other)
  Sender: FDA-Public Use
  Company Number: CN-BAYER-2015-252976

PATIENT
  Age: 83 Year

DRUGS (1)
  1. GLUCOBAY [Suspect]
     Active Substance: ACARBOSE
     Indication: DIABETES MELLITUS
     Dosage: 1 DF, TID
     Dates: start: 2012

REACTIONS (7)
  - Glycosylated haemoglobin increased [Recovered/Resolved]
  - Albumin urine present [Recovered/Resolved]
  - Weight decreased [None]
  - Renal impairment [Recovered/Resolved]
  - Blood glucose increased [None]
  - Urine analysis abnormal [Recovered/Resolved]
  - Liver function test abnormal [Recovered/Resolved]

NARRATIVE: CASE EVENT DATE: 2013
